FAERS Safety Report 24028832 (Version 1)
Quarter: 2024Q2

REPORT INFORMATION
  Report Type: Spontaneous
  Country: US (occurrence: US)
  Receive Date: 20240628
  Receipt Date: 20240628
  Transmission Date: 20240716
  Serious: No
  Sender: FDA-Public Use
  Company Number: US-BIOGEN-2024BI01270776

PATIENT
  Sex: Female

DRUGS (18)
  1. TECFIDERA [Suspect]
     Active Substance: DIMETHYL FUMARATE
     Indication: Multiple sclerosis
     Route: 050
  2. QULIPTA [Concomitant]
     Active Substance: ATOGEPANT
     Route: 050
  3. TORADOL [Concomitant]
     Active Substance: KETOROLAC TROMETHAMINE
     Route: 050
  4. VALIUM [Concomitant]
     Active Substance: DIAZEPAM
     Route: 050
  5. PHENERGAN [Concomitant]
     Active Substance: PROMETHAZINE HYDROCHLORIDE
     Route: 050
  6. CIPRO [Concomitant]
     Active Substance: CIPROFLOXACIN\CIPROFLOXACIN HYDROCHLORIDE
     Route: 050
  7. XANAX [Concomitant]
     Active Substance: ALPRAZOLAM
     Route: 050
  8. ELAVIL [Concomitant]
     Active Substance: AMITRIPTYLINE HYDROCHLORIDE
     Route: 050
  9. ABILIFY [Concomitant]
     Active Substance: ARIPIPRAZOLE
     Route: 050
  10. LIPITOR [Concomitant]
     Active Substance: ATORVASTATIN CALCIUM
     Route: 050
  11. TEGRETOL [Concomitant]
     Active Substance: CARBAMAZEPINE
     Route: 050
  12. LEXAPRO [Concomitant]
     Active Substance: ESCITALOPRAM OXALATE
     Route: 050
  13. LAMICTAL [Concomitant]
     Active Substance: LAMOTRIGINE
     Route: 050
  14. SYNTHROID [Concomitant]
     Active Substance: LEVOTHYROXINE SODIUM
     Route: 050
  15. PROAMATINE [Concomitant]
     Active Substance: MIDODRINE HYDROCHLORIDE
     Route: 050
  16. ZOFRAN [Concomitant]
     Active Substance: ONDANSETRON HYDROCHLORIDE
     Route: 050
  17. PROTONIX [Concomitant]
     Active Substance: PANTOPRAZOLE SODIUM
     Route: 050
  18. CARAFATE [Concomitant]
     Active Substance: SUCRALFATE
     Route: 050

REACTIONS (1)
  - Multiple sclerosis [Unknown]
